FAERS Safety Report 19272929 (Version 1)
Quarter: 2021Q2

REPORT INFORMATION
  Report Type: Spontaneous
  Country: DE (occurrence: DE)
  Receive Date: 20210519
  Receipt Date: 20210519
  Transmission Date: 20210717
  Serious: Yes (Other)
  Sender: FDA-Public Use
  Company Number: DE-SA-2021SA164367

PATIENT
  Age: 82 Year
  Sex: Male

DRUGS (1)
  1. DUPIXENT [Suspect]
     Active Substance: DUPILUMAB
     Indication: NEURODERMATITIS
     Dosage: 300 MG, QOW
     Dates: start: 202103

REACTIONS (2)
  - Gastrooesophageal reflux disease [Unknown]
  - Oesophageal neoplasm [Unknown]

NARRATIVE: CASE EVENT DATE: 2021
